FAERS Safety Report 4555422-5 (Version None)
Quarter: 2005Q1

REPORT INFORMATION
  Report Type: 
  Country: None (occurrence: None)
  Receive Date: 20050118
  Receipt Date: 20050118
  Transmission Date: 20050727
  Serious: Yes (Life-Threatening, Hospitalization, Disabling, Other)
  Sender: FDA-Public Use
  Company Number: None

PATIENT
  Age: 55 Year
  Sex: Female
  Weight: 70.3075 kg

DRUGS (4)
  1. VIOXX [Suspect]
     Indication: HERPES ZOSTER
     Dosage: 1/DAY 5 DAYS  ORAL
     Route: 048
     Dates: start: 20040709, end: 20040713
  2. VIOXX [Suspect]
     Indication: INFLAMMATION
     Dosage: 1/DAY 5 DAYS  ORAL
     Route: 048
     Dates: start: 20040709, end: 20040713
  3. LOTREL [Concomitant]
  4. FAMVIR [Concomitant]

REACTIONS (3)
  - ANAEMIA [None]
  - ARTERIAL DISORDER [None]
  - GASTRIC PERFORATION [None]
